FAERS Safety Report 15117091 (Version 1)
Quarter: 2018Q3

REPORT INFORMATION
  Report Type: Report from Study
  Country: US (occurrence: US)
  Receive Date: 20180706
  Receipt Date: 20180706
  Transmission Date: 20181010
  Serious: Yes (Other)
  Sender: FDA-Public Use
  Company Number: US-JNJFOC-20180428570

PATIENT
  Sex: Male

DRUGS (4)
  1. IRON [Suspect]
     Active Substance: IRON
     Indication: PRODUCT USED FOR UNKNOWN INDICATION
     Route: 048
  2. ELIQUIS [Suspect]
     Active Substance: APIXABAN
     Indication: PRODUCT USED FOR UNKNOWN INDICATION
     Route: 065
  3. IMBRUVICA [Suspect]
     Active Substance: IBRUTINIB
     Indication: MANTLE CELL LYMPHOMA
     Route: 048
     Dates: start: 20170329
  4. IMBRUVICA [Suspect]
     Active Substance: IBRUTINIB
     Indication: MANTLE CELL LYMPHOMA
     Route: 048
     Dates: start: 20170802

REACTIONS (13)
  - Deafness unilateral [Unknown]
  - Iron deficiency anaemia [Unknown]
  - Disturbance in attention [Unknown]
  - Constipation [Unknown]
  - Amnesia [Not Recovered/Not Resolved]
  - Neutropenia [Unknown]
  - Contusion [Unknown]
  - Tinnitus [Not Recovered/Not Resolved]
  - Leukopenia [Unknown]
  - Blood pressure systolic increased [Unknown]
  - Haemorrhage [Unknown]
  - Seborrhoeic keratosis [Recovered/Resolved]
  - Seizure [Unknown]
